FAERS Safety Report 23965759 (Version 1)
Quarter: 2024Q2

REPORT INFORMATION
  Report Type: Spontaneous
  Country: GB (occurrence: GB)
  Receive Date: 20240612
  Receipt Date: 20240612
  Transmission Date: 20240716
  Serious: Yes (Hospitalization, Other)
  Sender: FDA-Public Use
  Company Number: GB-CELLTRION INC.-2024GB013688

PATIENT

DRUGS (4)
  1. INFLIXIMAB [Suspect]
     Active Substance: INFLIXIMAB
     Indication: Psoriatic arthropathy
     Dosage: UNK
     Dates: end: 2020
  2. INFLIXIMAB [Suspect]
     Active Substance: INFLIXIMAB
     Dosage: UNK
     Dates: start: 2020, end: 2022
  3. METHOTREXATE [Suspect]
     Active Substance: METHOTREXATE
     Indication: Psoriatic arthropathy
     Dosage: UNK
     Dates: end: 2020
  4. PENTAMIDINE [Concomitant]
     Active Substance: PENTAMIDINE
     Dosage: UNK, 3/WEEK
     Route: 042

REACTIONS (9)
  - Acute kidney injury [Unknown]
  - Primary biliary cholangitis [Unknown]
  - Visceral leishmaniasis [Recovered/Resolved]
  - Pancytopenia [Recovered/Resolved]
  - Neutropenia [Not Recovered/Not Resolved]
  - Cutaneous leishmaniasis [Recovering/Resolving]
  - Infectious pleural effusion [Recovering/Resolving]
  - COVID-19 [Recovered/Resolved]
  - Contraindication to medical treatment [Unknown]

NARRATIVE: CASE EVENT DATE: 20200101
